FAERS Safety Report 7441634-X (Version None)
Quarter: 2011Q2

REPORT INFORMATION
  Report Type: 
  Country: None (occurrence: None)
  Receive Date: 20110419
  Receipt Date: 20110411
  Transmission Date: 20111010
  Serious: Yes (Other)
  Sender: FDA-Public Use
  Company Number: DSA_45382_2011

PATIENT
  Sex: Female
  Weight: 78.4723 kg

DRUGS (6)
  1. DEPAKOTE [Concomitant]
  2. LORAZEPAM [Concomitant]
  3. LORTAB [Concomitant]
  4. SEROQUEL [Concomitant]
  5. XENAZINE [Suspect]
     Indication: MOVEMENT DISORDER
     Dosage: (12.5 MG BID ORAL)
     Route: 048
     Dates: start: 20110407
  6. PERCOCET [Concomitant]

REACTIONS (6)
  - COGNITIVE DISORDER [None]
  - STARING [None]
  - INCONTINENCE [None]
  - ACTIVITIES OF DAILY LIVING IMPAIRED [None]
  - MOBILITY DECREASED [None]
  - COMMUNICATION DISORDER [None]
